FAERS Safety Report 9849916 (Version 2)
Quarter: 2014Q1

REPORT INFORMATION
  Report Type: Report from Study
  Country: CA (occurrence: CA)
  Receive Date: 20140128
  Receipt Date: 20140130
  Transmission Date: 20141002
  Serious: No
  Sender: FDA-Public Use
  Company Number: CA-JNJFOC-20140112270

PATIENT
  Age: 14 Year
  Sex: Female

DRUGS (1)
  1. SIMPONI [Suspect]
     Indication: JUVENILE IDIOPATHIC ARTHRITIS
     Route: 058
     Dates: start: 20131220

REACTIONS (2)
  - Arthritis [Not Recovered/Not Resolved]
  - Off label use [Unknown]
